FAERS Safety Report 25089979 (Version 1)
Quarter: 2025Q1

REPORT INFORMATION
  Report Type: Spontaneous
  Country: US (occurrence: US)
  Receive Date: 20250318
  Receipt Date: 20250318
  Transmission Date: 20250409
  Serious: Yes (Other)
  Sender: SANOFI AVENTIS
  Company Number: US-SA-2025SA078708

PATIENT
  Sex: Female
  Weight: 61.36 kg

DRUGS (10)
  1. DUPIXENT [Suspect]
     Active Substance: DUPILUMAB
     Indication: Asthma
     Dosage: 300 MG, QOW
     Route: 058
     Dates: start: 202310
  2. DUPIXENT [Suspect]
     Active Substance: DUPILUMAB
     Indication: Dermatitis atopic
  3. SKYRIZI [Concomitant]
     Active Substance: RISANKIZUMAB-RZAA
  4. LEVOTHYROXINE SODIUM [Concomitant]
     Active Substance: LEVOTHYROXINE SODIUM
  5. LASIX [Concomitant]
     Active Substance: FUROSEMIDE
  6. TOPROL XL [Concomitant]
     Active Substance: METOPROLOL SUCCINATE
  7. MONTELUKAST SODIUM [Concomitant]
     Active Substance: MONTELUKAST SODIUM
  8. DOCUSATE SODIUM [Concomitant]
     Active Substance: DOCUSATE SODIUM
  9. GABAPENTIN [Concomitant]
     Active Substance: GABAPENTIN
  10. ELIQUIS [Concomitant]
     Active Substance: APIXABAN

REACTIONS (3)
  - Femur fracture [Unknown]
  - Psoriasis [Unknown]
  - Fall [Unknown]
